FAERS Safety Report 19309027 (Version 2)
Quarter: 2021Q2

REPORT INFORMATION
  Report Type: Other
  Country: US (occurrence: US)
  Receive Date: 20210526
  Receipt Date: 20210628
  Transmission Date: 20210717
  Serious: Yes (Other)
  Sender: FDA-Public Use
  Company Number: US-ROCHE-2491351

PATIENT
  Sex: Female

DRUGS (1)
  1. COTELLIC [Suspect]
     Active Substance: COBIMETINIB
     Indication: HISTIOCYTOSIS
     Dosage: TAKE 1 TABLET BY MOUTH DAILY ON DAYS 1?21 OF 28 D
     Route: 048

REACTIONS (8)
  - Off label use [Unknown]
  - Vomiting [Unknown]
  - Cortisol decreased [Unknown]
  - Vocal cord dysfunction [Unknown]
  - Dysphagia [Unknown]
  - Diarrhoea [Unknown]
  - Nephrolithiasis [Unknown]
  - Nausea [Unknown]
